FAERS Safety Report 9178165 (Version 1)
Quarter: 2013Q1

REPORT INFORMATION
  Report Type: Report from Study
  Country: US (occurrence: US)
  Receive Date: 20130321
  Receipt Date: 20130321
  Transmission Date: 20140127
  Serious: Yes (Other)
  Sender: FDA-Public Use
  Company Number: US-ABBOTT-13P-163-1062152-00

PATIENT
  Age: 59 None
  Sex: Male

DRUGS (4)
  1. NIASPAN (COATED) [Suspect]
     Indication: PRODUCT USED FOR UNKNOWN INDICATION
     Dates: start: 2005
  2. ASA [Concomitant]
     Indication: PRODUCT USED FOR UNKNOWN INDICATION
  3. RENOXACIN [Concomitant]
     Indication: PRODUCT USED FOR UNKNOWN INDICATION
  4. UNKNOWN MEDICATIONS [Concomitant]
     Indication: PRODUCT USED FOR UNKNOWN INDICATION

REACTIONS (9)
  - Myocardial infarction [Recovered/Resolved]
  - Myocardial infarction [Recovered/Resolved]
  - Deep vein thrombosis [Recovered/Resolved]
  - Coronary arterial stent insertion [Unknown]
  - Coronary arterial stent insertion [Unknown]
  - Pulmonary embolism [Recovering/Resolving]
  - Coronary artery bypass [Unknown]
  - Angina pectoris [Unknown]
  - Hot flush [Unknown]
